FAERS Safety Report 25862926 (Version 1)
Quarter: 2025Q3

REPORT INFORMATION
  Report Type: Spontaneous
  Country: JP (occurrence: JP)
  Receive Date: 20250930
  Receipt Date: 20250930
  Transmission Date: 20251020
  Serious: Yes (Disabling)
  Sender: BOEHRINGER INGELHEIM
  Company Number: JP-NBI-2025-BI-098251

PATIENT
  Age: 77 Year
  Sex: Male

DRUGS (2)
  1. OFEV [Suspect]
     Active Substance: NINTEDANIB
     Indication: Interstitial lung disease
     Dates: start: 20250901, end: 20250911
  2. OFEV [Suspect]
     Active Substance: NINTEDANIB

REACTIONS (6)
  - Coronavirus infection [Recovered/Resolved with Sequelae]
  - Cough [Not Recovered/Not Resolved]
  - Somnolence [Not Recovered/Not Resolved]
  - Early satiety [Not Recovered/Not Resolved]
  - Malaise [Not Recovered/Not Resolved]
  - Apathy [Unknown]

NARRATIVE: CASE EVENT DATE: 20250914
